FAERS Safety Report 4432663-9 (Version None)
Quarter: 2004Q3

REPORT INFORMATION
  Report Type: 
  Country: None (occurrence: None)
  Receive Date: 20040820
  Receipt Date: 20040807
  Transmission Date: 20050211
  Serious: Yes (Hospitalization)
  Sender: FDA-Public Use
  Company Number: 2004048539

PATIENT
  Sex: Male
  Weight: 86.1834 kg

DRUGS (6)
  1. TIKOSYN [Suspect]
     Indication: ATRIAL FIBRILLATION
     Dosage: 1000 MCG (500 MCG, 2 IN 1 D), ORAL
     Route: 048
     Dates: start: 19980101
  2. ALLOPURINOL [Suspect]
     Indication: GOUT
     Dates: start: 20030801, end: 20030901
  3. FOSINOPRIL SODIUM [Concomitant]
  4. DIGOXIN [Concomitant]
  5. DYAZIDE [Concomitant]
  6. DILTIAZEM HYDROCHLORIDE [Concomitant]

REACTIONS (11)
  - ANOREXIA [None]
  - ARRHYTHMIA [None]
  - ASTHENIA [None]
  - BLOOD URIC ACID INCREASED [None]
  - FATIGUE [None]
  - GASTRIC DISORDER [None]
  - GOUT [None]
  - INCREASED TENDENCY TO BRUISE [None]
  - MEDICATION ERROR [None]
  - MYALGIA [None]
  - PAIN [None]
